FAERS Safety Report 4345037-6 (Version None)
Quarter: 2004Q2

REPORT INFORMATION
  Report Type: 
  Country: None (occurrence: None)
  Receive Date: 20040420
  Receipt Date: 20040413
  Transmission Date: 20050107
  Serious: Yes (Life-Threatening, Hospitalization)
  Sender: FDA-Public Use
  Company Number: 2004GB00871

PATIENT
  Age: 64 Year
  Sex: Male
  Weight: 71 kg

DRUGS (4)
  1. CRESTOR [Suspect]
     Indication: HYPERCHOLESTEROLAEMIA
     Dosage: 20 MG HS PO
     Route: 048
     Dates: start: 20031030, end: 20040304
  2. RAMIPRIL [Concomitant]
  3. DOTHIEPIN HYDROCHLORIDE [Concomitant]
  4. BENDROFLUAZIDE [Concomitant]

REACTIONS (1)
  - RENAL TUBULAR NECROSIS [None]
